FAERS Safety Report 7660384-8 (Version None)
Quarter: 2011Q3

REPORT INFORMATION
  Report Type: 
  Country: None (occurrence: None)
  Receive Date: 20110805
  Receipt Date: 20110728
  Transmission Date: 20111222
  Serious: Yes (Hospitalization, Other)
  Sender: FDA-Public Use
  Company Number: BE-ABBOTT-10P-013-0623729-00

PATIENT
  Sex: Female
  Weight: 64 kg

DRUGS (6)
  1. MOVIPREP [Concomitant]
     Indication: CONSTIPATION
     Dosage: 1 SACHET
     Dates: start: 20100101
  2. CELEBREX [Concomitant]
     Indication: ARTHRALGIA
     Dates: start: 20090801
  3. HUMIRA [Suspect]
     Indication: CROHN'S DISEASE
     Route: 058
     Dates: start: 20080917, end: 20091227
  4. ACETAMINOPHEN [Concomitant]
     Indication: PAIN
  5. MEDROL [Concomitant]
     Indication: ARTHRALGIA
     Dates: start: 20091001
  6. PLAQUENIL [Concomitant]
     Indication: ARTHRALGIA

REACTIONS (1)
  - INTESTINAL OBSTRUCTION [None]
